FAERS Safety Report 20315096 (Version 1)
Quarter: 2022Q1

REPORT INFORMATION
  Report Type: Spontaneous
  Country: US (occurrence: None)
  Receive Date: 20220110
  Receipt Date: 20220110
  Transmission Date: 20220423
  Serious: No
  Sender: FDA-Public Use
  Company Number: US-ROCHE-2722236

PATIENT
  Age: 29 Year
  Sex: Female

DRUGS (3)
  1. RITUXAN [Suspect]
     Active Substance: RITUXIMAB
     Indication: Neuromyelitis optica spectrum disorder
     Dosage: ONGOING NO
     Route: 042
     Dates: start: 20180120, end: 20190120
  2. RITUXAN [Suspect]
     Active Substance: RITUXIMAB
     Dosage: ONGOING- UNKNOWN
     Route: 042
     Dates: start: 20201023
  3. OMEGA-3 ACIDS [Concomitant]
     Active Substance: OMEGA-3 FATTY ACIDS
     Dosage: ONGOING:YES
     Route: 048
     Dates: start: 201809

REACTIONS (3)
  - Off label use [Unknown]
  - Maternal exposure during pregnancy [Unknown]
  - No adverse event [Unknown]

NARRATIVE: CASE EVENT DATE: 20181201
